FAERS Safety Report 19106019 (Version 2)
Quarter: 2021Q3

REPORT INFORMATION
  Report Type: Spontaneous
  Country: US (occurrence: US)
  Receive Date: 20210408
  Receipt Date: 20210715
  Transmission Date: 20211014
  Serious: Yes (Death, Other)
  Sender: FDA-Public Use
  Company Number: US-BRISTOL-MYERS SQUIBB COMPANY-BMS-2021-033493

PATIENT
  Age: 66 Year
  Sex: Male
  Weight: 78.82 kg

DRUGS (2)
  1. OPDIVO [Suspect]
     Active Substance: NIVOLUMAB
     Indication: NEOPLASM MALIGNANT
     Dosage: 240 MILLIGRAM, Q2WK
     Route: 042
  2. YERVOY [Suspect]
     Active Substance: IPILIMUMAB
     Indication: NEOPLASM MALIGNANT
     Dosage: 79 MILLIGRAM, EVERY 42 DAYS
     Route: 042

REACTIONS (2)
  - Off label use [Unknown]
  - Malignant neoplasm progression [Fatal]
